FAERS Safety Report 13365685 (Version 1)
Quarter: 2017Q1

REPORT INFORMATION
  Report Type: Spontaneous
  Country: NL (occurrence: NL)
  Receive Date: 20170323
  Receipt Date: 20170323
  Transmission Date: 20170429
  Serious: Yes (Death, Hospitalization)
  Sender: FDA-Public Use
  Company Number: NL-IPCA LABORATORIES LIMITED-IPC201703-000283

PATIENT
  Age: 45 Year
  Sex: Female

DRUGS (7)
  1. METHADONE [Suspect]
     Active Substance: METHADONE HYDROCHLORIDE
  2. EPINEPHRINE. [Suspect]
     Active Substance: EPINEPHRINE
  3. VALSARTAN. [Concomitant]
     Active Substance: VALSARTAN
  4. RED BULL ENERGY DRINK (CAFFEINE AND CATHECHOLAMINES) [Suspect]
     Active Substance: DIETARY SUPPLEMENT
  5. CLOMIPRAMINE [Concomitant]
     Active Substance: CLOMIPRAMINE
  6. HYDROCHLOROTHIAZIDE. [Suspect]
     Active Substance: HYDROCHLOROTHIAZIDE
  7. METOPROLOL. [Concomitant]
     Active Substance: METOPROLOL

REACTIONS (7)
  - Hypokalaemia [Fatal]
  - Cardiac arrest [Recovered/Resolved]
  - Metabolic acidosis [Unknown]
  - Lactic acidosis [Recovering/Resolving]
  - Hypophosphataemia [Recovered/Resolved]
  - Ventricular fibrillation [Recovered/Resolved]
  - Brain injury [Unknown]
